FAERS Safety Report 18932557 (Version 2)
Quarter: 2025Q4

REPORT INFORMATION
  Report Type: Spontaneous
  Country: US (occurrence: US)
  Receive Date: 20210223
  Receipt Date: 20251209
  Transmission Date: 20260118
  Serious: Yes (Life-Threatening, Hospitalization, Other)
  Sender: AUROBINDO
  Company Number: US-MLMSERVICE-20210212-2723405-1

PATIENT
  Age: 41 Year
  Sex: Male

DRUGS (1)
  1. NAPROXEN [Suspect]
     Active Substance: NAPROXEN
     Indication: Pain
     Dosage: UNK
     Route: 065

REACTIONS (6)
  - Gingival bleeding [Unknown]
  - Haemarthrosis [Unknown]
  - Epistaxis [Unknown]
  - Petechiae [Unknown]
  - Thrombocytopenia [Recovering/Resolving]
  - Haematuria [Unknown]
